FAERS Safety Report 9298805 (Version 1)
Quarter: 2013Q2

REPORT INFORMATION
  Report Type: Spontaneous
  Country: DE (occurrence: DE)
  Receive Date: 20130520
  Receipt Date: 20130520
  Transmission Date: 20140414
  Serious: Yes (Hospitalization)
  Sender: FDA-Public Use
  Company Number: DE-JNJFOC-20130507378

PATIENT
  Age: 58 Year
  Sex: Male
  Weight: 115 kg

DRUGS (20)
  1. REMICADE [Suspect]
     Indication: CROHN^S DISEASE
     Route: 042
     Dates: start: 20111213
  2. REMICADE [Suspect]
     Indication: CROHN^S DISEASE
     Route: 042
     Dates: start: 20111101
  3. REMICADE [Suspect]
     Indication: CROHN^S DISEASE
     Route: 042
     Dates: start: 20110919
  4. REMICADE [Suspect]
     Indication: CROHN^S DISEASE
     Route: 042
     Dates: start: 20110802
  5. REMICADE [Suspect]
     Indication: CROHN^S DISEASE
     Route: 042
     Dates: start: 20110621
  6. REMICADE [Suspect]
     Indication: CROHN^S DISEASE
     Route: 042
     Dates: start: 20120124
  7. DECORTIN [Concomitant]
     Indication: CROHN^S DISEASE
     Route: 065
  8. DECORTIN [Concomitant]
     Indication: CROHN^S DISEASE
     Route: 065
  9. CEFUROXIM [Concomitant]
     Route: 065
     Dates: start: 20111130, end: 20111207
  10. L THYROXIN [Concomitant]
     Indication: HYPOTHYROIDISM
     Route: 065
  11. ALLOPURINOL [Concomitant]
     Indication: HYPERTENSION
     Route: 065
  12. CONCOR [Concomitant]
     Indication: HYPERTENSION
     Route: 065
  13. AMLODIPINE [Concomitant]
     Indication: HYPERTENSION
     Route: 065
  14. RAMIPRIL [Concomitant]
     Indication: HYPERTENSION
     Route: 065
  15. PANTOPRAZOLE [Concomitant]
     Route: 065
  16. CALCIUM [Concomitant]
     Indication: PROPHYLAXIS
     Route: 065
  17. DICLOFENAC [Concomitant]
     Indication: MYALGIA
     Route: 065
  18. URACID [Concomitant]
     Indication: URINARY TRACT INFECTION
     Route: 065
     Dates: start: 20111221, end: 20111228
  19. CALCIUM DURA [Concomitant]
     Route: 065
  20. SPASMEX [Concomitant]
     Route: 065
     Dates: start: 20120105, end: 201211

REACTIONS (4)
  - Benign prostatic hyperplasia [Recovered/Resolved]
  - Urinary tract infection [Recovered/Resolved]
  - Urinary retention [Recovered/Resolved]
  - Prostatitis [Recovered/Resolved]
